FAERS Safety Report 13107813 (Version 1)
Quarter: 2017Q1

REPORT INFORMATION
  Report Type: Spontaneous
  Country: US (occurrence: US)
  Receive Date: 20170112
  Receipt Date: 20170112
  Transmission Date: 20170428
  Serious: Yes (Death, Hospitalization, Other)
  Sender: FDA-Public Use
  Company Number: US-APOTEX-2017AP005288

PATIENT
  Age: 50 Year
  Sex: Female

DRUGS (1)
  1. VERAPAMIL HYDROCHLORIDE. [Suspect]
     Active Substance: VERAPAMIL HYDROCHLORIDE
     Indication: PRODUCT USED FOR UNKNOWN INDICATION
     Route: 048

REACTIONS (6)
  - Completed suicide [Fatal]
  - Heart rate decreased [Fatal]
  - Intentional overdose [Fatal]
  - Lethargy [Fatal]
  - Blood pressure decreased [Fatal]
  - Toxicity to various agents [Fatal]
